FAERS Safety Report 9257757 (Version 1)
Quarter: 2013Q2

REPORT INFORMATION
  Report Type: Spontaneous
  Country: US (occurrence: None)
  Receive Date: 20130424
  Receipt Date: 20130424
  Transmission Date: 20140414
  Serious: Yes (Other)
  Sender: FDA-Public Use
  Company Number: None

PATIENT
  Age: 19 Year
  Sex: Female
  Weight: 44.2 kg

DRUGS (1)
  1. BORTEZOMIB [Suspect]
     Dosage: RECEIVED 3 DOSES 1.5 MG-0.72ML, EVERY 3 DAYS SQ
     Route: 058
     Dates: start: 20130409, end: 20130416

REACTIONS (3)
  - Injection site reaction [None]
  - Purpura [None]
  - Skin reaction [None]
